FAERS Safety Report 5867524-1 (Version None)
Quarter: 2008Q3

REPORT INFORMATION
  Report Type: 
  Country: None (occurrence: None)
  Receive Date: 20080902
  Receipt Date: 20070912
  Transmission Date: 20090109
  Serious: No
  Sender: FDA-Public Use
  Company Number: US-ABBOTT-07P-163-0417161-00

PATIENT
  Sex: Female
  Weight: 79.45 kg

DRUGS (1)
  1. DEPAKOTE ER [Suspect]
     Indication: GRAND MAL CONVULSION
     Dosage: 4 TID
     Route: 048

REACTIONS (1)
  - DYSPHAGIA [None]
